FAERS Safety Report 21256699 (Version 5)
Quarter: 2023Q1

REPORT INFORMATION
  Report Type: Spontaneous
  Country: US (occurrence: US)
  Receive Date: 20220826
  Receipt Date: 20230310
  Transmission Date: 20230418
  Serious: No
  Sender: FDA-Public Use
  Company Number: US-BIOVITRUM-2022US08271

PATIENT
  Age: 67 Year
  Sex: Male

DRUGS (6)
  1. KINERET [Suspect]
     Active Substance: ANAKINRA
     Indication: Systemic scleroderma
     Route: 058
     Dates: start: 20220608
  2. KINERET [Suspect]
     Active Substance: ANAKINRA
     Route: 058
  3. KINERET [Suspect]
     Active Substance: ANAKINRA
     Route: 058
     Dates: start: 20220607
  4. KINERET [Suspect]
     Active Substance: ANAKINRA
     Route: 058
  5. KINERET [Suspect]
     Active Substance: ANAKINRA
     Route: 058
  6. KINERET [Suspect]
     Active Substance: ANAKINRA
     Route: 058
     Dates: start: 202206

REACTIONS (23)
  - White blood cell count increased [Unknown]
  - Haemoglobin decreased [Unknown]
  - Platelet count increased [Unknown]
  - Serum ferritin increased [Unknown]
  - C-reactive protein increased [Unknown]
  - Blood glucose increased [Unknown]
  - COVID-19 [Recovered/Resolved]
  - Diarrhoea [Unknown]
  - Injection site haemorrhage [Unknown]
  - Product dose omission issue [Unknown]
  - Respiratory syncytial virus infection [Unknown]
  - Fatigue [Unknown]
  - Illness [Unknown]
  - Eye disorder [Unknown]
  - Flatulence [Recovering/Resolving]
  - Abdominal distension [Recovering/Resolving]
  - Dyspepsia [Recovering/Resolving]
  - Nasal congestion [Unknown]
  - Cough [Unknown]
  - Pyrexia [Unknown]
  - Weight increased [Unknown]
  - Appetite disorder [Unknown]
  - Intentional product misuse [Unknown]

NARRATIVE: CASE EVENT DATE: 20220608
